FAERS Safety Report 5520716-3 (Version None)
Quarter: 2007Q4

REPORT INFORMATION
  Report Type: 
  Country: None (occurrence: None)
  Receive Date: 20071119
  Receipt Date: 20071114
  Transmission Date: 20080405
  Serious: Yes (Hospitalization)
  Sender: FDA-Public Use
  Company Number: JP-BRISTOL-MYERS SQUIBB COMPANY-13985973

PATIENT
  Age: 73 Year
  Sex: Male

DRUGS (9)
  1. BRIPLATIN [Suspect]
     Indication: PLEURAL MESOTHELIOMA MALIGNANT
     Route: 042
     Dates: start: 20070416, end: 20070416
  2. ALIMTA [Suspect]
     Indication: PLEURAL MESOTHELIOMA MALIGNANT
     Route: 041
     Dates: start: 20070416, end: 20070416
  3. PANVITAN [Concomitant]
     Route: 048
     Dates: start: 20070409
  4. MASBLON H [Concomitant]
     Route: 030
     Dates: start: 20070409, end: 20070409
  5. TEGRETOL [Concomitant]
     Route: 048
     Dates: start: 20070410
  6. ALDECIN [Concomitant]
     Route: 055
  7. DIOVAN [Concomitant]
     Route: 048
  8. ZANTAC [Concomitant]
  9. LENDORMIN [Concomitant]
     Route: 048

REACTIONS (3)
  - ANOREXIA [None]
  - NAUSEA [None]
  - VOMITING [None]
